FAERS Safety Report 12116679 (Version 1)
Quarter: 2016Q1

REPORT INFORMATION
  Report Type: Spontaneous
  Country: US (occurrence: US)
  Receive Date: 20160225
  Receipt Date: 20160225
  Transmission Date: 20160526
  Serious: No
  Sender: FDA-Public Use
  Company Number: US-BIOGEN-2016BI00193734

PATIENT
  Sex: Female

DRUGS (2)
  1. TYSABRI [Concomitant]
     Active Substance: NATALIZUMAB
     Indication: MULTIPLE SCLEROSIS
     Dosage: UNKNOWN DOSE, FREQUENCY, ROUTE AND DURATION
     Route: 065
  2. TECFIDERA [Suspect]
     Active Substance: DIMETHYL FUMARATE
     Indication: MULTIPLE SCLEROSIS
     Dosage: UNKNOWN DOSE, FREQUENCY AND DURATION
     Route: 048

REACTIONS (7)
  - Depressed level of consciousness [Unknown]
  - Eye disorder [Unknown]
  - Mental impairment [Unknown]
  - Time perception altered [Unknown]
  - Hypoaesthesia [Unknown]
  - Paraesthesia [Unknown]
  - Memory impairment [Unknown]
